FAERS Safety Report 7603325-1 (Version None)
Quarter: 2011Q3

REPORT INFORMATION
  Report Type: 
  Country: None (occurrence: None)
  Receive Date: 20110712
  Receipt Date: 20110629
  Transmission Date: 20111222
  Serious: Yes (Other)
  Sender: FDA-Public Use
  Company Number: PHHY2010US64103

PATIENT
  Sex: Male
  Weight: 30 kg

DRUGS (6)
  1. EXJADE [Suspect]
     Dosage: 500 MG, QD
     Route: 048
  2. ASCORBIC ACID [Concomitant]
     Dosage: 800 IU DAILY
     Route: 048
  3. VITAMIN B [Concomitant]
     Route: 048
  4. EXJADE [Suspect]
     Indication: IRON OVERLOAD
     Dosage: 500 MG, TID
     Route: 048
     Dates: start: 20100803, end: 20100913
  5. EXJADE [Suspect]
     Dosage: 500 MG, BID
     Route: 048
  6. VITAMIN D [Concomitant]
     Dosage: 800 IU DAILY
     Route: 048

REACTIONS (6)
  - DYSPNOEA [None]
  - HEADACHE [None]
  - ANGER [None]
  - JOINT SWELLING [None]
  - TINNITUS [None]
  - RASH [None]
